FAERS Safety Report 7307875-7 (Version None)
Quarter: 2011Q1

REPORT INFORMATION
  Report Type: 
  Country: None (occurrence: None)
  Receive Date: 20110209
  Receipt Date: 20110124
  Transmission Date: 20110831
  Serious: Yes (Death)
  Sender: FDA-Public Use
  Company Number: 2011S1000048

PATIENT
  Age: 36 Year
  Sex: Female

DRUGS (4)
  1. ROXICODONE [Suspect]
     Dosage: PO
     Route: 048
     Dates: end: 20090101
  2. PANTOPRAZOLE [Suspect]
     Dosage: PO
     Route: 048
     Dates: end: 20090101
  3. VENLAFAXINE [Suspect]
     Dosage: PO
     Route: 048
     Dates: end: 20090101
  4. ACETAMINOPHEN AND OXYCODONE HCL [Suspect]
     Dosage: PO
     Route: 048
     Dates: end: 20090101

REACTIONS (1)
  - COMPLETED SUICIDE [None]
